FAERS Safety Report 14454023 (Version 1)
Quarter: 2018Q1

REPORT INFORMATION
  Report Type: Spontaneous
  Country: US (occurrence: US)
  Receive Date: 20180129
  Receipt Date: 20180129
  Transmission Date: 20180509
  Serious: No
  Sender: FDA-Public Use
  Company Number: US-ALLERGAN-1772760US

PATIENT
  Age: 17 Year
  Sex: Male
  Weight: 90.7 kg

DRUGS (1)
  1. TAZAROTENE UNK [Suspect]
     Active Substance: TAZAROTENE
     Indication: ACNE
     Dosage: UNK, QD
     Route: 061
     Dates: start: 20171113, end: 20171113

REACTIONS (3)
  - Application site erythema [Not Recovered/Not Resolved]
  - Skin reaction [Not Recovered/Not Resolved]
  - Application site swelling [Not Recovered/Not Resolved]
